FAERS Safety Report 5167203-2 (Version None)
Quarter: 2006Q4

REPORT INFORMATION
  Report Type: 
  Country: None (occurrence: None)
  Receive Date: 20061130
  Receipt Date: 20061129
  Transmission Date: 20070319
  Serious: Yes (Hospitalization)
  Sender: FDA-Public Use
  Company Number: ITWYE612321NOV06

PATIENT
  Age: 29 Year
  Sex: Male

DRUGS (5)
  1. RAPAMUNE [Suspect]
     Indication: IMMUNOSUPPRESSION
     Dosage: 3 MG 1X PER 1 DAY; ORAL
     Route: 048
     Dates: start: 20030801
  2. CELLCEPT [Suspect]
     Dates: start: 20040401, end: 20051101
  3. CELLCEPT [Suspect]
     Dosage: 750 MG 1X PER 1 DAY; ORAL
     Route: 048
     Dates: start: 20051101
  4. PREDNISONE [Suspect]
     Indication: IMMUNOSUPPRESSION
     Dosage: 12.5 MG 1X PER 1 DAY, ORAL
     Route: 048
     Dates: start: 20031101, end: 20041101
  5. PREDNISONE [Suspect]
     Dosage: 15 MG 1X PER 1 DAY; ORAL
     Route: 048
     Dates: start: 20061101

REACTIONS (10)
  - ACNE [None]
  - ALOPECIA EFFLUVIUM [None]
  - ANAEMIA [None]
  - APHTHOUS STOMATITIS [None]
  - DIALYSIS [None]
  - FEELING ABNORMAL [None]
  - HIP ARTHROPLASTY [None]
  - KIDNEY TRANSPLANT REJECTION [None]
  - RENAL TRANSPLANT [None]
  - ROAD TRAFFIC ACCIDENT [None]
